FAERS Safety Report 23266225 (Version 1)
Quarter: 2023Q4

REPORT INFORMATION
  Report Type: Spontaneous
  Country: US (occurrence: US)
  Receive Date: 20231206
  Receipt Date: 20231206
  Transmission Date: 20240110
  Serious: Yes (Hospitalization)
  Sender: FDA-Public Use
  Company Number: US-drreddys-LIT/USA/23/0187914

PATIENT
  Age: 57 Year
  Sex: Male

DRUGS (5)
  1. BIVALIRUDIN [Suspect]
     Active Substance: BIVALIRUDIN
     Indication: Autoimmune heparin-induced thrombocytopenia
  2. HEPARIN SODIUM [Suspect]
     Active Substance: HEPARIN SODIUM
     Indication: Anticoagulant therapy
  3. DEXAMETHASONE [Suspect]
     Active Substance: DEXAMETHASONE
     Indication: Autoimmune heparin-induced thrombocytopenia
     Dosage: ON DAY 20-23
     Route: 042
  4. PRIVIGEN [Suspect]
     Active Substance: HUMAN IMMUNOGLOBULIN G
     Indication: Autoimmune heparin-induced thrombocytopenia
     Dosage: 1 G/KG ON DAY 15
     Route: 042
  5. PRIVIGEN [Suspect]
     Active Substance: HUMAN IMMUNOGLOBULIN G
     Dosage: 1 G/KG ON DAY 20-21 (SECOND COURSE)
     Route: 042

REACTIONS (5)
  - Autoimmune heparin-induced thrombocytopenia [Recovered/Resolved]
  - Acute myocardial infarction [Recovered/Resolved]
  - Disease recurrence [Recovered/Resolved]
  - Disseminated intravascular coagulation [Recovered/Resolved]
  - Drug ineffective [Unknown]
